FAERS Safety Report 9751488 (Version 1)
Quarter: 2013Q4

REPORT INFORMATION
  Report Type: Spontaneous
  Country: US (occurrence: US)
  Receive Date: 20131212
  Receipt Date: 20131212
  Transmission Date: 20140711
  Serious: No
  Sender: FDA-Public Use
  Company Number: US-PURDUE-USA-2013-0108852

PATIENT
  Age: 46 Year
  Sex: Female

DRUGS (5)
  1. HYDROMORPHONE HCL (SIMILAR TO 19-892) [Suspect]
     Indication: BACK PAIN
     Dosage: 4 MG, QID PRN
     Route: 048
     Dates: start: 2011
  2. EXALGO [Concomitant]
     Indication: BACK PAIN
     Dosage: 60 MG, DAILY
  3. ATIVAN [Concomitant]
     Indication: SLEEP APNOEA SYNDROME
     Dosage: UNK
  4. XANAX [Concomitant]
     Indication: SLEEP APNOEA SYNDROME
  5. RESTORIL                           /00393701/ [Concomitant]
     Indication: SLEEP APNOEA SYNDROME

REACTIONS (2)
  - Drug screen negative [Unknown]
  - Inadequate analgesia [Unknown]
